FAERS Safety Report 7720713-3 (Version None)
Quarter: 2011Q3

REPORT INFORMATION
  Report Type: 
  Country: None (occurrence: None)
  Receive Date: 20110831
  Receipt Date: 20110817
  Transmission Date: 20111222
  Serious: Yes (Other)
  Sender: FDA-Public Use
  Company Number: PHBS2004BR12521

PATIENT
  Sex: Female
  Weight: 48 kg

DRUGS (9)
  1. CALCIO [Concomitant]
     Indication: OSTEOPOROSIS
     Dosage: 1 TABLET, QD
     Route: 048
  2. ANDRONAX [Concomitant]
     Indication: OSTEOPOROSIS
     Dosage: 1 TABLET, QD
     Route: 048
  3. ATENOLOL [Suspect]
     Indication: PROPHYLAXIS
     Dosage: 25 MG, 1 TABLET AFTER BREAKFAST
     Route: 048
  4. DIOVAN HCT [Suspect]
     Indication: HYPERTENSION
     Dosage: VALS 160/ HCT 12.5 MG/QOD
     Route: 048
     Dates: start: 20040801
  5. VITAMIN E [Concomitant]
     Dosage: 1 TABLET, QD
     Route: 048
  6. CALTREN [Suspect]
     Indication: CAROTID ARTERY OCCLUSION
     Dosage: 1 DF, DAY
     Route: 048
  7. ASPIRIN [Suspect]
     Indication: BLOOD DISORDER
     Dosage: 100 MG, 1 TABLET AFTER BREAKFAST
     Route: 048
  8. GINKGO BILOBA [Concomitant]
     Indication: AMNESIA
     Dosage: 1 TABLET, QD
     Route: 048
  9. DIOVAN [Suspect]
     Indication: HYPERTENSION
     Dosage: 160 MG, PER DAY
     Route: 048
     Dates: start: 20040801

REACTIONS (6)
  - NAUSEA [None]
  - GASTRITIS [None]
  - EYE DEGENERATIVE DISORDER [None]
  - HIATUS HERNIA [None]
  - CATARACT [None]
  - CAROTID ARTERY OCCLUSION [None]
